FAERS Safety Report 4545723-9 (Version None)
Quarter: 2005Q1

REPORT INFORMATION
  Report Type: 
  Country: None (occurrence: None)
  Receive Date: 20050103
  Receipt Date: 20050103
  Transmission Date: 20050727
  Serious: No
  Sender: FDA-Public Use
  Company Number: None

PATIENT
  Age: 62 Year
  Sex: Male
  Weight: 68.0396 kg

DRUGS (8)
  1. PLAVIX [Suspect]
     Indication: CORONARY ARTERY DISEASE
     Dosage: 1 TABLET   ONCE A DAY  ORAL
     Route: 048
     Dates: start: 20041221, end: 20041228
  2. PLAVIX [Suspect]
     Indication: HYPERTENSION
     Dosage: 1 TABLET   ONCE A DAY  ORAL
     Route: 048
     Dates: start: 20041221, end: 20041228
  3. PLAVIX [Suspect]
     Indication: STENT PLACEMENT
     Dosage: 1 TABLET   ONCE A DAY  ORAL
     Route: 048
     Dates: start: 20041221, end: 20041228
  4. ACEON [Concomitant]
  5. LIPITOR [Concomitant]
  6. FOLIC ACID [Concomitant]
  7. TOPOROL [Concomitant]
  8. ASPRIN [Concomitant]

REACTIONS (5)
  - BLISTER [None]
  - DRUG HYPERSENSITIVITY [None]
  - DRY SKIN [None]
  - RASH GENERALISED [None]
  - SWELLING [None]
